FAERS Safety Report 4879485-2 (Version None)
Quarter: 2005Q4

REPORT INFORMATION
  Report Type: 
  Country: None (occurrence: None)
  Receive Date: 20051209
  Receipt Date: 20051005
  Transmission Date: 20060501
  Serious: Yes (Hospitalization)
  Sender: FDA-Public Use
  Company Number: USA-2005-0021436

PATIENT
  Age: 50 Year
  Sex: Female

DRUGS (4)
  1. OXYCONTIN [Suspect]
  2. OXYCODONE HCL [Suspect]
  3. BMS247550 [Concomitant]
  4. XELODA [Concomitant]

REACTIONS (1)
  - ABDOMINAL PAIN [None]
